FAERS Safety Report 24559810 (Version 1)
Quarter: 2024Q4

REPORT INFORMATION
  Report Type: Other
  Country: CN (occurrence: CN)
  Receive Date: 20241029
  Receipt Date: 20241029
  Transmission Date: 20250115
  Serious: Yes (Death, Hospitalization, Other)
  Sender: ANI
  Company Number: CN-ANIPHARMA-012649

PATIENT
  Age: 20 Year
  Sex: Male

DRUGS (17)
  1. CYCLOPHOSPHAMIDE [Suspect]
     Active Substance: CYCLOPHOSPHAMIDE
     Indication: B-cell type acute leukaemia
     Dosage: 600MG-VDCLP REGIMEN
     Dates: start: 20211021
  2. IDARUBICIN [Concomitant]
     Active Substance: IDARUBICIN
     Indication: B-cell type acute leukaemia
     Dosage: 10MG-VDCLP REGIMEN
     Dates: start: 20211021
  3. VINORELBINE [Concomitant]
     Active Substance: VINORELBINE TARTRATE
     Indication: B-cell type acute leukaemia
     Dosage: 40MG-VDCLP REGIMEN
     Dates: start: 20211021
  4. PEGASPARGASE [Concomitant]
     Active Substance: PEGASPARGASE
     Indication: B-cell type acute leukaemia
     Dosage: 3750IU-VDCLP REGIMEN
     Dates: start: 20211021
  5. DEXAMETHASONE [Concomitant]
     Active Substance: DEXAMETHASONE
     Indication: B-cell type acute leukaemia
     Dosage: 10MG-VDCLP REGIMEN
     Dates: start: 20211021
  6. CYTARABINE [Concomitant]
     Active Substance: CYTARABINE
     Indication: B-cell type acute leukaemia
     Dosage: 200MG -IDOAP REGIMEN
  7. DOXORUBICIN [Concomitant]
     Active Substance: DOXORUBICIN
     Indication: B-cell type acute leukaemia
     Dosage: CHOP REGIMEN
     Dates: start: 20211216
  8. VINCRISTINE [Concomitant]
     Active Substance: VINCRISTINE
     Indication: B-cell type acute leukaemia
     Dosage: CHOP REGIMEN
     Dates: start: 20211216
  9. PREDNISONE [Concomitant]
     Active Substance: PREDNISONE
     Indication: B-cell type acute leukaemia
     Dosage: CHOP REGIMEN
     Dates: start: 20211216
  10. FLUDARABINE [Concomitant]
     Active Substance: FLUDARABINE PHOSPHATE
     Indication: B-cell type acute leukaemia
     Dosage: 30 MG/M2 - LYMPHABLATIVE CHEMOTHERAPY
     Dates: start: 20211227
  11. VINORELBINE [Concomitant]
     Active Substance: VINORELBINE TARTRATE
     Indication: B-cell type acute leukaemia
     Dosage: 40 MG -IDOAP REGIMEN
  12. CYCLOPHOSPHAMIDE [Suspect]
     Active Substance: CYCLOPHOSPHAMIDE
     Indication: B-cell type acute leukaemia
     Dosage: CHOP REGIMEN
     Dates: start: 20211216
  13. IDARUBICIN [Concomitant]
     Active Substance: IDARUBICIN
     Indication: B-cell type acute leukaemia
     Dosage: 10MG-IDOAP REGIMEN
  14. CYCLOPHOSPHAMIDE [Suspect]
     Active Substance: CYCLOPHOSPHAMIDE
     Indication: B-cell type acute leukaemia
     Dosage: 500MG/M2  -LYMPHABLATIVE CHEMOTHERAPY
     Dates: start: 20211227
  15. CYCLOPHOSPHAMIDE [Suspect]
     Active Substance: CYCLOPHOSPHAMIDE
     Indication: B-cell type acute leukaemia
     Dosage: FC REGIMEN CHEMOTHERAPY
     Dates: start: 20220307
  16. FLUDARABINE [Concomitant]
     Active Substance: FLUDARABINE PHOSPHATE
     Indication: B-cell type acute leukaemia
     Dosage: FC REGIMEN CHEMOTHERAPY
     Dates: start: 20220307
  17. DEXAMETHASONE [Concomitant]
     Active Substance: DEXAMETHASONE
     Indication: B-cell type acute leukaemia
     Dosage: 10MG- IDOAP REGIMEN

REACTIONS (3)
  - Agranulocytosis [Recovering/Resolving]
  - Drug ineffective [Fatal]
  - Pyrexia [Recovering/Resolving]
